FAERS Safety Report 8896350 (Version 1)
Quarter: 2012Q4

REPORT INFORMATION
  Report Type: Spontaneous
  Country: US (occurrence: None)
  Receive Date: 20121031
  Receipt Date: 20121031
  Transmission Date: 20130627
  Serious: Yes (Hospitalization)
  Sender: FDA-Public Use
  Company Number: IMP_06042_2012

PATIENT
  Age: 20 Year
  Sex: Male

DRUGS (3)
  1. ALPRAZOLAM [Suspect]
     Indication: PRODUCT USED FOR UNKNOWN INDICATION
     Dosage: (Not the prescribed amount Oral)
  2. OXYCODONE [Suspect]
     Indication: PRODUCT USED FOR UNKNOWN INDICATION
     Dosage: (Not the prescribed amount Oral)
  3. DUST OFF [Suspect]
     Indication: PRODUCT USED FOR UNKNOWN INDICATION
     Dosage: (Unknown prior to admission Nasal)

REACTIONS (9)
  - Poisoning [None]
  - Impaired driving ability [None]
  - Mental status changes [None]
  - Blood pressure increased [None]
  - Somnolence [None]
  - Drug screen positive [None]
  - Pericarditis [None]
  - Left ventricular dysfunction [None]
  - Cardiomyopathy [None]
